FAERS Safety Report 18949414 (Version 1)
Quarter: 2021Q1

REPORT INFORMATION
  Report Type: Report from Study
  Country: AR (occurrence: AR)
  Receive Date: 20210227
  Receipt Date: 20210227
  Transmission Date: 20210420
  Serious: Yes (Hospitalization)
  Sender: FDA-Public Use
  Company Number: NVSC2021AR031153

PATIENT
  Age: 51 Year
  Sex: Female
  Weight: 85 kg

DRUGS (6)
  1. GILENYA [Suspect]
     Active Substance: FINGOLIMOD HYDROCHLORIDE
     Dosage: UNK
     Route: 065
     Dates: start: 2018, end: 20200815
  2. DATIZIC [Concomitant]
     Indication: MULTIPLE SCLEROSIS
     Dosage: 1 DF, Q12H
     Route: 065
     Dates: start: 2017
  3. DATIZIC [Concomitant]
     Indication: GAIT DISTURBANCE
  4. GILENYA [Suspect]
     Active Substance: FINGOLIMOD HYDROCHLORIDE
     Dosage: UNK
     Route: 065
     Dates: start: 20210114
  5. LOSACOR D [Concomitant]
     Active Substance: HYDROCHLOROTHIAZIDE\LOSARTAN POTASSIUM
     Indication: HYPERTENSION
     Dosage: 1 DF, QD
     Route: 065
  6. GILENYA [Suspect]
     Active Substance: FINGOLIMOD HYDROCHLORIDE
     Indication: MULTIPLE SCLEROSIS
     Dosage: UNK UNK, QD (0.5)
     Route: 048
     Dates: end: 20200814

REACTIONS (9)
  - Weight decreased [Unknown]
  - COVID-19 [Recovered/Resolved]
  - Neuralgia [Unknown]
  - Pyrexia [Recovered/Resolved]
  - Arthritis bacterial [Recovered/Resolved]
  - Body temperature increased [Recovered/Resolved]
  - Pain [Recovered/Resolved]
  - Staphylococcal infection [Recovered/Resolved]
  - Pyrexia [Recovered/Resolved]

NARRATIVE: CASE EVENT DATE: 20200814
